FAERS Safety Report 13781146 (Version 1)
Quarter: 2017Q3

REPORT INFORMATION
  Report Type: Spontaneous
  Country: US (occurrence: US)
  Receive Date: 20170723
  Receipt Date: 20170723
  Transmission Date: 20171127
  Serious: No
  Sender: FDA-Public Use
  Company Number: None

PATIENT
  Age: 67 Year
  Sex: Female
  Weight: 135 kg

DRUGS (14)
  1. PERFECT PROBIOTIC [Concomitant]
  2. ONE A DAY 50+ [Concomitant]
  3. FLUTICASONE. [Concomitant]
     Active Substance: FLUTICASONE
  4. METFORMIN [Concomitant]
     Active Substance: METFORMIN HYDROCHLORIDE
  5. FISH OIL [Concomitant]
     Active Substance: FISH OIL
  6. AMLODIPINE BESYLATE. [Concomitant]
     Active Substance: AMLODIPINE BESYLATE
  7. VITAMIN D3 [Concomitant]
     Active Substance: CHOLECALCIFEROL
  8. LIALDA [Suspect]
     Active Substance: MESALAMINE
     Indication: COLITIS ULCERATIVE
     Dosage: ?          OTHER STRENGTH:GM;QUANTITY:2 TABLET(S);?
     Route: 048
     Dates: start: 20170221, end: 20170525
  9. LISINOPRIL. [Concomitant]
     Active Substance: LISINOPRIL
  10. ATORVASTATIN [Concomitant]
     Active Substance: ATORVASTATIN
  11. BALSALAZIDE [Concomitant]
     Active Substance: BALSALAZIDE
  12. OSTEO BI-FLEX TRIPLE STRENGTH [Concomitant]
  13. LEVOTHYROXINE. [Concomitant]
     Active Substance: LEVOTHYROXINE
  14. METOPROLOL TARTRATE. [Concomitant]
     Active Substance: METOPROLOL TARTRATE

REACTIONS (2)
  - Product label issue [None]
  - Alopecia [None]

NARRATIVE: CASE EVENT DATE: 20170621
